FAERS Safety Report 9226701 (Version 1)
Quarter: 2013Q2

REPORT INFORMATION
  Report Type: Spontaneous
  Country: US (occurrence: US)
  Receive Date: 20130412
  Receipt Date: 20130412
  Transmission Date: 20140414
  Serious: Yes (Other)
  Sender: FDA-Public Use
  Company Number: US-PFIZER INC-2013112984

PATIENT
  Age: 46 Year
  Sex: Male
  Weight: 110 kg

DRUGS (3)
  1. LYRICA [Suspect]
     Dosage: 50 MG, DAILY
     Dates: start: 201303
  2. LYRICA [Suspect]
     Dosage: 50 MG, 3X/DAY
     Dates: start: 201304
  3. METFORMIN HCL [Suspect]
     Indication: DIABETES MELLITUS
     Dosage: UNK

REACTIONS (12)
  - Suicidal ideation [Not Recovered/Not Resolved]
  - Insomnia [Not Recovered/Not Resolved]
  - Vision blurred [Not Recovered/Not Resolved]
  - Hypoaesthesia [Not Recovered/Not Resolved]
  - Pruritus [Not Recovered/Not Resolved]
  - Mood altered [Not Recovered/Not Resolved]
  - Abnormal behaviour [Not Recovered/Not Resolved]
  - Oedema peripheral [Not Recovered/Not Resolved]
  - Burning sensation [Not Recovered/Not Resolved]
  - Blood glucose abnormal [Unknown]
  - Anxiety [Not Recovered/Not Resolved]
  - Myalgia [Not Recovered/Not Resolved]
